FAERS Safety Report 12592782 (Version 1)
Quarter: 2016Q3

REPORT INFORMATION
  Report Type: Report from Study
  Country: US (occurrence: US)
  Receive Date: 20160726
  Receipt Date: 20160726
  Transmission Date: 20161109
  Serious: Yes (Other)
  Sender: FDA-Public Use
  Company Number: US-AMGEN-USASL2016094610

PATIENT
  Age: 72 Year
  Sex: Male

DRUGS (8)
  1. REPATHA [Suspect]
     Active Substance: EVOLOCUMAB
     Indication: BLOOD CHOLESTEROL INCREASED
     Dosage: 140 MG, Q2WK
     Route: 065
     Dates: start: 20160309
  2. ALLOPURINOL. [Concomitant]
     Active Substance: ALLOPURINOL
     Dosage: 300 UNK, UNK
  3. AVODART [Concomitant]
     Active Substance: DUTASTERIDE
     Dosage: 0.05 UNK, UNK
  4. ASPIRIN 81 [Concomitant]
     Active Substance: ASPIRIN
     Dosage: 81 UNK, UNK
  5. PREVACID [Concomitant]
     Active Substance: LANSOPRAZOLE
     Dosage: 0.65 UNK, UNK
  6. TOPROL XL [Concomitant]
     Active Substance: METOPROLOL SUCCINATE
     Dosage: 50 UNK, UNK
  7. CYMBALTA [Concomitant]
     Active Substance: DULOXETINE HYDROCHLORIDE
     Dosage: 60 UNK, UNK
  8. FLOMAX [Concomitant]
     Active Substance: TAMSULOSIN HYDROCHLORIDE
     Dosage: 0.04 UNK, UNK

REACTIONS (5)
  - Loss of consciousness [Unknown]
  - Limb discomfort [Unknown]
  - Back disorder [Unknown]
  - Cerebrovascular accident [Unknown]
  - Memory impairment [Unknown]

NARRATIVE: CASE EVENT DATE: 20160701
